FAERS Safety Report 11111131 (Version 1)
Quarter: 2015Q2

REPORT INFORMATION
  Report Type: Spontaneous
  Country: US (occurrence: US)
  Receive Date: 20150513
  Receipt Date: 20150513
  Transmission Date: 20150821
  Serious: Yes (Hospitalization)
  Sender: FDA-Public Use
  Company Number: US-HOSPIRA-2856300

PATIENT
  Sex: Female

DRUGS (1)
  1. KETOROLAC [Suspect]
     Active Substance: KETOROLAC\KETOROLAC TROMETHAMINE
     Indication: PRODUCT USED FOR UNKNOWN INDICATION
     Route: 030
     Dates: start: 201409

REACTIONS (4)
  - Product contamination physical [Unknown]
  - Nephrolithiasis [Unknown]
  - Drug administration error [Unknown]
  - Product deposit [Unknown]
